FAERS Safety Report 21040301 (Version 1)
Quarter: 2022Q3

REPORT INFORMATION
  Report Type: Spontaneous
  Country: US (occurrence: US)
  Receive Date: 20220704
  Receipt Date: 20220704
  Transmission Date: 20221027
  Serious: Yes (Other)
  Sender: FDA-Public Use
  Company Number: US-CELGENE-USA-20220208481

PATIENT
  Age: 82 Year
  Sex: Female

DRUGS (3)
  1. REVLIMID [Suspect]
     Active Substance: LENALIDOMIDE
     Indication: Myelodysplastic syndrome
     Dosage: FREQUENCY TEXT: NOT PROVIDED?10 MILLIGRAM
     Route: 048
     Dates: start: 201710
  2. REVLIMID [Suspect]
     Active Substance: LENALIDOMIDE
     Indication: Rubber sensitivity
     Dosage: FREQUENCY TEXT: NOT PROVIDED?5 MILLIGRAM
     Route: 048
     Dates: start: 201803
  3. REVLIMID [Suspect]
     Active Substance: LENALIDOMIDE
     Route: 048
     Dates: start: 20181010

REACTIONS (5)
  - Confusional state [Unknown]
  - Back pain [Unknown]
  - Neck pain [Unknown]
  - Dementia [Unknown]
  - Intentional product use issue [Unknown]
